FAERS Safety Report 12105636 (Version 2)
Quarter: 2016Q1

REPORT INFORMATION
  Report Type: Spontaneous
  Country: US (occurrence: US)
  Receive Date: 20160223
  Receipt Date: 20160223
  Transmission Date: 20160526
  Serious: Yes (Other)
  Sender: FDA-Public Use
  Company Number: US-LPDUSPRD-20160143

PATIENT
  Age: 68 Year
  Sex: Male

DRUGS (2)
  1. OLANZAPINE FOR INJECTION (0517-0955-01) [Suspect]
     Active Substance: OLANZAPINE
     Dosage: 5 MG
     Route: 042
  2. FENTANYL. [Concomitant]
     Active Substance: FENTANYL
     Dosage: DOSE UNKNOWN
     Route: 065

REACTIONS (3)
  - Incorrect route of drug administration [Unknown]
  - Hypoxia [Unknown]
  - Respiration abnormal [Unknown]
